FAERS Safety Report 24035973 (Version 1)
Quarter: 2024Q2

REPORT INFORMATION
  Report Type: Spontaneous
  Country: US (occurrence: None)
  Receive Date: 20240629
  Receipt Date: 20240629
  Transmission Date: 20240716
  Serious: No
  Sender: FDA-Public Use
  Company Number: None

PATIENT
  Age: 72 Year
  Sex: Male
  Weight: 90 kg

DRUGS (3)
  1. ACALABRUTINIB [Suspect]
     Active Substance: ACALABRUTINIB
     Dates: end: 20201123
  2. BENDAMUSTINE HYDROCHLORIDE [Suspect]
     Active Substance: BENDAMUSTINE HYDROCHLORIDE
     Dates: end: 20201028
  3. RITUXIMAB [Suspect]
     Active Substance: RITUXIMAB
     Dates: end: 20201027

REACTIONS (3)
  - Basal cell carcinoma [None]
  - Squamous cell carcinoma [None]
  - Squamous cell carcinoma [None]

NARRATIVE: CASE EVENT DATE: 20231229
